FAERS Safety Report 13039985 (Version 1)
Quarter: 2016Q4

REPORT INFORMATION
  Report Type: Spontaneous
  Country: US (occurrence: US)
  Receive Date: 20161219
  Receipt Date: 20161219
  Transmission Date: 20170207
  Serious: Yes (Other)
  Sender: FDA-Public Use
  Company Number: US-WEST-WARD PHARMACEUTICALS CORP.-US-H14001-16-02942

PATIENT
  Age: 57 Year
  Sex: Male

DRUGS (10)
  1. RISPERIDONE. [Suspect]
     Active Substance: RISPERIDONE
     Route: 065
     Dates: start: 2009, end: 2011
  2. TEMOZOLOMIDE. [Concomitant]
     Active Substance: TEMOZOLOMIDE
     Indication: GLIOBLASTOMA
     Dosage: LOW-DOSE INTAKE EVERY DAY FOR 6 WEEKS WITH 2-WEEK GAPS IN BETWEEN THE 6-WEEK CYCLES
     Route: 065
     Dates: end: 20061005
  3. AVASTIN [Concomitant]
     Active Substance: BEVACIZUMAB
     Indication: GLIOBLASTOMA
     Route: 065
  4. RISPERIDONE. [Suspect]
     Active Substance: RISPERIDONE
     Route: 065
     Dates: start: 2011, end: 201109
  5. RISPERIDONE. [Suspect]
     Active Substance: RISPERIDONE
     Route: 065
     Dates: start: 201109
  6. RISPERIDONE. [Suspect]
     Active Substance: RISPERIDONE
     Indication: SCHIZOPHRENIA
     Route: 065
     Dates: start: 2000, end: 2006
  7. TEMOZOLOMIDE. [Concomitant]
     Active Substance: TEMOZOLOMIDE
     Route: 065
  8. TEMOZOLOMIDE. [Concomitant]
     Active Substance: TEMOZOLOMIDE
     Dosage: 150 KG/M2, FOR DAYS 15 FOR EVERY 28-DAY CYCLE
     Route: 065
     Dates: end: 201112
  9. RISPERIDONE. [Suspect]
     Active Substance: RISPERIDONE
     Dosage: TOTAL DAILY DOSE OF 6 MG AND UP TO 6.5 MG AS NEEDED
     Route: 065
     Dates: start: 2006, end: 2008
  10. RISPERIDONE. [Suspect]
     Active Substance: RISPERIDONE
     Indication: SCHIZOPHRENIA
     Route: 065
     Dates: start: 2008, end: 2009

REACTIONS (3)
  - Gait disturbance [Unknown]
  - Overdose [Recovered/Resolved]
  - Cognitive disorder [Unknown]
